FAERS Safety Report 7756877-5 (Version None)
Quarter: 2011Q3

REPORT INFORMATION
  Report Type: 
  Country: None (occurrence: None)
  Receive Date: 20110916
  Receipt Date: 20110913
  Transmission Date: 20111222
  Serious: Yes (Hospitalization)
  Sender: FDA-Public Use
  Company Number: US-GLAXOSMITHKLINE-A0808569A

PATIENT
  Age: 54 Year
  Sex: Male
  Weight: 79.5 kg

DRUGS (9)
  1. ALLOPURINOL [Concomitant]
  2. AVANDIA [Suspect]
     Indication: DIABETES MELLITUS
     Dosage: 8MG PER DAY
     Route: 048
     Dates: start: 20010118, end: 20071008
  3. INSULIN [Concomitant]
  4. AVANDAMET [Suspect]
     Indication: DIABETES MELLITUS
     Route: 048
  5. METOPROLOL TARTRATE [Concomitant]
  6. GLUCOPHAGE [Concomitant]
  7. LISINOPRIL [Concomitant]
  8. VIOXX [Concomitant]
  9. NEURONTIN [Concomitant]

REACTIONS (6)
  - TRANSIENT ISCHAEMIC ATTACK [None]
  - HYPERLIPIDAEMIA [None]
  - CORONARY ARTERY DISEASE [None]
  - CEREBROVASCULAR ACCIDENT [None]
  - ACUTE CORONARY SYNDROME [None]
  - MYOCARDIAL INFARCTION [None]
